FAERS Safety Report 5388660-2 (Version None)
Quarter: 2007Q3

REPORT INFORMATION
  Report Type: 
  Country: None (occurrence: None)
  Receive Date: 20070712
  Receipt Date: 20070628
  Transmission Date: 20080115
  Serious: Yes (Congenital Anomaly)
  Sender: FDA-Public Use
  Company Number: 158192ISR

PATIENT

DRUGS (3)
  1. CARBAMAZEPINE [Suspect]
     Indication: EPILEPSY
     Dosage: TRANSPLACENTAL
     Route: 064
  2. PHENOBARBITAL TAB [Suspect]
     Indication: EPILEPSY
     Dosage: TRANSPLACENTAL
     Route: 064
  3. FOLIC ACID [Concomitant]

REACTIONS (6)
  - CONGENITAL CYSTIC KIDNEY DISEASE [None]
  - DRUG EXPOSURE DURING PREGNANCY [None]
  - DYSMORPHISM [None]
  - ECTOPIC KIDNEY [None]
  - PROMINENT EPICANTHAL FOLDS [None]
  - SOLITARY KIDNEY [None]
